FAERS Safety Report 8960066 (Version 2)
Quarter: 2013Q1

REPORT INFORMATION
  Report Type: Spontaneous
  Country: US (occurrence: US)
  Receive Date: 20121211
  Receipt Date: 20130109
  Transmission Date: 20140127
  Serious: Yes (Hospitalization)
  Sender: FDA-Public Use
  Company Number: US-GLAXOSMITHKLINE-A0881114A

PATIENT
  Age: 47 Year
  Sex: Female
  Weight: 105.9 kg

DRUGS (1)
  1. AVANDIA [Suspect]
     Indication: TYPE 2 DIABETES MELLITUS
     Dosage: 4MG TWICE PER DAY
     Route: 048
     Dates: start: 1999, end: 20080601

REACTIONS (2)
  - Myocardial infarction [Recovering/Resolving]
  - Cardiac failure congestive [Unknown]
